FAERS Safety Report 11643468 (Version 1)
Quarter: 2015Q4

REPORT INFORMATION
  Report Type: Spontaneous
  Country: US (occurrence: US)
  Receive Date: 20151020
  Receipt Date: 20151020
  Transmission Date: 20160304
  Serious: Yes (Other)
  Sender: FDA-Public Use
  Company Number: US-PFIZER INC-2015349461

PATIENT
  Age: 54 Year
  Sex: Male

DRUGS (2)
  1. LIDOCAINE HCL [Suspect]
     Active Substance: LIDOCAINE HYDROCHLORIDE
     Dosage: UNK
     Route: 008
     Dates: start: 20151009
  2. DEPO-MEDROL [Suspect]
     Active Substance: METHYLPREDNISOLONE ACETATE
     Dosage: UNK, 80 MG/ML
     Route: 008
     Dates: start: 20151009

REACTIONS (2)
  - Incorrect route of drug administration [Unknown]
  - Extradural abscess [Unknown]

NARRATIVE: CASE EVENT DATE: 20151009
